FAERS Safety Report 8382800 (Version 2)
Quarter: 2015Q1

REPORT INFORMATION
  Report Type: Report from Study
  Country: US (occurrence: US)
  Receive Date: 20120201
  Receipt Date: 20150227
  Transmission Date: 20150721
  Serious: Yes (Death)
  Sender: FDA-Public Use
  Company Number: US-ROCHE-1035009

PATIENT
  Sex: Male

DRUGS (36)
  1. GRANISETRON [Concomitant]
     Active Substance: GRANISETRON
     Route: 048
  2. TAGAMET [Concomitant]
     Active Substance: CIMETIDINE
     Route: 042
  3. ATIVAN [Concomitant]
     Active Substance: LORAZEPAM
     Route: 042
  4. PROCHLORPERAZINE. [Concomitant]
     Active Substance: PROCHLORPERAZINE
     Route: 048
  5. CARBOPLATIN. [Concomitant]
     Active Substance: CARBOPLATIN
     Indication: PRODUCT USED FOR UNKNOWN INDICATION
     Route: 042
  6. CIMETIDINE [Concomitant]
     Active Substance: CIMETIDINE
     Route: 042
  7. FENTANYL. [Concomitant]
     Active Substance: FENTANYL
     Route: 042
  8. AVASTIN [Suspect]
     Active Substance: BEVACIZUMAB
     Indication: BRONCHIAL CARCINOMA
  9. DECADRON [Concomitant]
     Active Substance: DEXAMETHASONE
     Route: 042
  10. PEGFILGRASTIM [Concomitant]
     Active Substance: PEGFILGRASTIM
     Route: 058
  11. BENADRYL [Concomitant]
     Active Substance: DIPHENHYDRAMINE HYDROCHLORIDE
     Route: 042
  12. ONDANSETRON [Concomitant]
     Active Substance: ONDANSETRON
     Route: 042
  13. DEXAMETHASONE. [Concomitant]
     Active Substance: DEXAMETHASONE
     Route: 042
  14. CYMBALTA [Concomitant]
     Active Substance: DULOXETINE HYDROCHLORIDE
  15. XANAX [Concomitant]
     Active Substance: ALPRAZOLAM
     Route: 065
  16. HYDROCORTISONE. [Concomitant]
     Active Substance: HYDROCORTISONE
     Route: 042
  17. AVASTIN [Suspect]
     Active Substance: BEVACIZUMAB
     Indication: TRACHEAL CANCER
     Route: 042
     Dates: start: 20070814
  18. DECADRON [Concomitant]
     Active Substance: DEXAMETHASONE
     Route: 042
  19. ZOMETA [Concomitant]
     Active Substance: ZOLEDRONIC ACID
     Route: 042
  20. DEXAMETHASONE. [Concomitant]
     Active Substance: DEXAMETHASONE
     Route: 042
  21. GABAPENTIN. [Concomitant]
     Active Substance: GABAPENTIN
  22. PRILOSEC [Concomitant]
     Active Substance: OMEPRAZOLE MAGNESIUM
  23. ZOFRAN [Concomitant]
     Active Substance: ONDANSETRON HYDROCHLORIDE
     Route: 042
  24. ONDANSETRON [Concomitant]
     Active Substance: ONDANSETRON
     Route: 042
  25. DEXAMETHASONE. [Concomitant]
     Active Substance: DEXAMETHASONE
     Route: 042
  26. PREVACID [Concomitant]
     Active Substance: LANSOPRAZOLE
  27. LIDOCAINE. [Concomitant]
     Active Substance: LIDOCAINE
     Dosage: SOLUTION
     Route: 048
  28. EPINEPHRINE. [Concomitant]
     Active Substance: EPINEPHRINE
     Route: 042
  29. AVASTIN [Suspect]
     Active Substance: BEVACIZUMAB
     Indication: LUNG NEOPLASM MALIGNANT
  30. NEURONTIN [Concomitant]
     Active Substance: GABAPENTIN
     Route: 065
  31. HEPARIN [Concomitant]
     Active Substance: HEPARIN SODIUM
  32. DECADRON [Concomitant]
     Active Substance: DEXAMETHASONE
     Route: 042
  33. TAXOL [Concomitant]
     Active Substance: PACLITAXEL
     Indication: PRODUCT USED FOR UNKNOWN INDICATION
     Route: 042
  34. PEGFILGRASTIM [Concomitant]
     Active Substance: PEGFILGRASTIM
     Route: 058
  35. ONDANSETRON [Concomitant]
     Active Substance: ONDANSETRON
     Route: 042
  36. AMBIEN [Concomitant]
     Active Substance: ZOLPIDEM TARTRATE

REACTIONS (7)
  - Death [Fatal]
  - Memory impairment [Unknown]
  - Toothache [Unknown]
  - Headache [Unknown]
  - Tinnitus [Unknown]
  - Vomiting [Unknown]
  - Nausea [Unknown]
